FAERS Safety Report 22038268 (Version 1)
Quarter: 2023Q1

REPORT INFORMATION
  Report Type: Spontaneous
  Country: KR (occurrence: KR)
  Receive Date: 20230227
  Receipt Date: 20230227
  Transmission Date: 20230418
  Serious: Yes (Death, Other)
  Sender: FDA-Public Use
  Company Number: KR-STERISCIENCE B.V.-2023-ST-000795

PATIENT
  Age: 63 Year
  Sex: Male

DRUGS (14)
  1. VANCOMYCIN [Suspect]
     Active Substance: VANCOMYCIN
     Indication: Pathogen resistance
     Dosage: UNK
     Route: 065
     Dates: start: 2018
  2. VANCOMYCIN [Suspect]
     Active Substance: VANCOMYCIN
     Indication: Pneumonia klebsiella
  3. MYCOPHENOLATE MOFETIL [Suspect]
     Active Substance: MYCOPHENOLATE MOFETIL
     Indication: Posterior reversible encephalopathy syndrome
     Dosage: UNKNOWN
     Route: 065
     Dates: start: 2018
  4. RITUXIMAB [Suspect]
     Active Substance: RITUXIMAB
     Indication: Posterior reversible encephalopathy syndrome
     Dosage: UNKNOWN
     Route: 065
     Dates: start: 2018
  5. RUXOLITINIB [Suspect]
     Active Substance: RUXOLITINIB
     Indication: Posterior reversible encephalopathy syndrome
     Dosage: UNKNOWN
     Route: 065
     Dates: start: 2018
  6. TACROLIMUS [Suspect]
     Active Substance: TACROLIMUS
     Indication: Posterior reversible encephalopathy syndrome
     Dosage: UNKNOWN
     Route: 065
     Dates: start: 2018
  7. TACROLIMUS [Suspect]
     Active Substance: TACROLIMUS
     Dosage: UNK
     Dates: start: 2018
  8. AZACITIDINE [Concomitant]
     Active Substance: AZACITIDINE
     Indication: Myelodysplastic syndrome
     Dosage: 3 CYCLES FOR 3 MONTHS
     Route: 065
     Dates: start: 2018
  9. BUSULFAN [Concomitant]
     Active Substance: BUSULFAN
     Indication: Myelodysplastic syndrome
     Dosage: UNKNOWN
     Route: 065
     Dates: start: 201807
  10. FLUDARABINE [Concomitant]
     Active Substance: FLUDARABINE PHOSPHATE
     Indication: Myelodysplastic syndrome
     Dosage: UNKNOWN
     Route: 065
     Dates: start: 201807
  11. THYMOCYTE IMMUNE GLOBULIN NOS [Concomitant]
     Active Substance: THYMOCYTE IMMUNE GLOBULIN NOS
     Indication: Myelodysplastic syndrome
     Dosage: UNK
     Dates: start: 201807
  12. METHYLPREDNISOLONE [Concomitant]
     Active Substance: METHYLPREDNISOLONE
     Indication: Posterior reversible encephalopathy syndrome
     Dosage: UNKNOWN
     Route: 065
     Dates: start: 2018
  13. Immunoglobulin [Concomitant]
     Indication: Posterior reversible encephalopathy syndrome
     Dosage: UNKNOWN
     Route: 042
     Dates: start: 2018
  14. LEVETIRACETAM [Concomitant]
     Active Substance: LEVETIRACETAM
     Indication: Posterior reversible encephalopathy syndrome
     Dosage: UNKNOWN
     Route: 065
     Dates: start: 2018

REACTIONS (1)
  - Drug ineffective for unapproved indication [Fatal]

NARRATIVE: CASE EVENT DATE: 20180101
